FAERS Safety Report 7137738-1 (Version None)
Quarter: 2010Q4

REPORT INFORMATION
  Report Type: 
  Country: None (occurrence: None)
  Receive Date: 20101206
  Receipt Date: 20101021
  Transmission Date: 20110411
  Serious: Yes (Death)
  Sender: FDA-Public Use
  Company Number: US-SANOFI-AVENTIS-2010SA018343

PATIENT
  Age: 37 Year
  Sex: Male
  Weight: 82 kg

DRUGS (9)
  1. AMBIEN [Suspect]
     Route: 048
  2. ZOLPIDEM [Suspect]
     Route: 065
     Dates: start: 20070501
  3. ZOLPIDEM [Suspect]
     Route: 065
     Dates: start: 20071201, end: 20080301
  4. ETHANOL [Suspect]
     Route: 065
     Dates: start: 20080301
  5. WELLBUTRIN [Concomitant]
     Indication: ANXIETY
  6. WELLBUTRIN [Concomitant]
     Indication: DEPRESSION
  7. ENALAPRIL [Concomitant]
  8. ZOCOR [Concomitant]
  9. HYDROCHLOROTHIAZIDE [Concomitant]

REACTIONS (1)
  - COMPLETED SUICIDE [None]
